FAERS Safety Report 16613235 (Version 1)
Quarter: 2019Q3

REPORT INFORMATION
  Report Type: Spontaneous
  Country: US (occurrence: US)
  Receive Date: 20190722
  Receipt Date: 20190722
  Transmission Date: 20191004
  Serious: No
  Sender: FDA-Public Use
  Company Number: US-AMGEN INC.-USASP2019113651

PATIENT
  Age: 41 Year
  Sex: Female

DRUGS (1)
  1. AIMOVIG [Suspect]
     Active Substance: ERENUMAB-AOOE
     Indication: MIGRAINE
     Dosage: 70 MILLIGRAM, QMO (UNSUCCESSFUL ATTEMPT)
     Route: 065
     Dates: start: 20190712

REACTIONS (5)
  - Wrong technique in product usage process [Unknown]
  - Feeling hot [Not Recovered/Not Resolved]
  - Injection site haemorrhage [Unknown]
  - Accidental exposure to product [Unknown]
  - Injury associated with device [Unknown]

NARRATIVE: CASE EVENT DATE: 201907
